FAERS Safety Report 10732764 (Version 1)
Quarter: 2015Q1

REPORT INFORMATION
  Report Type: Spontaneous
  Country: TW (occurrence: None)
  Receive Date: 20150120
  Receipt Date: 20150120
  Transmission Date: 20150721
  Serious: Yes (Hospitalization)
  Sender: FDA-Public Use
  Company Number: IPC201501-000004

PATIENT
  Age: 45 Year
  Sex: Male

DRUGS (3)
  1. LABETALOL [Concomitant]
     Active Substance: LABETALOL\LABETALOL HYDROCHLORIDE
  2. OLMESARTAN [Concomitant]
     Active Substance: OLMESARTAN
  3. WARFARIN (WARFARIN) (WARFARIN) [Suspect]
     Active Substance: WARFARIN

REACTIONS (6)
  - International normalised ratio decreased [None]
  - Renal infarct [None]
  - Cerebral haemorrhage [None]
  - Cerebral infarction [None]
  - Aphasia [None]
  - Hemianopia [None]
